FAERS Safety Report 19634254 (Version 1)
Quarter: 2021Q3

REPORT INFORMATION
  Report Type: Spontaneous
  Country: US (occurrence: US)
  Receive Date: 20210729
  Receipt Date: 20210729
  Transmission Date: 20211014
  Serious: Yes (Hospitalization)
  Sender: FDA-Public Use
  Company Number: None

PATIENT
  Age: 49 Year
  Sex: Female

DRUGS (6)
  1. MYCOPHENOLATE [Concomitant]
     Active Substance: MYCOPHENOLIC ACID
  2. OXYCODONE [Concomitant]
     Active Substance: OXYCODONE
  3. VALGANCICLOV [Concomitant]
  4. IACROLIMUS [Concomitant]
  5. SM/TMP [Concomitant]
  6. CINACALCET, 30MG [Suspect]
     Active Substance: CINACALCET
     Indication: RENAL TRANSPLANT
     Route: 048
     Dates: start: 20210629

REACTIONS (1)
  - Therapy interrupted [None]

NARRATIVE: CASE EVENT DATE: 20210714
